FAERS Safety Report 15345562 (Version 1)
Quarter: 2018Q3

REPORT INFORMATION
  Report Type: Spontaneous
  Country: FR (occurrence: FR)
  Receive Date: 20180904
  Receipt Date: 20180904
  Transmission Date: 20181010
  Serious: Yes (Death)
  Sender: FDA-Public Use
  Company Number: FR-MERCK KGAA-2054578

PATIENT
  Age: 68 Year
  Sex: Female

DRUGS (8)
  1. ELIQUIS [Suspect]
     Active Substance: APIXABAN
     Route: 048
     Dates: end: 20180808
  2. NOVOTHYROX [Suspect]
     Active Substance: LEVOTHYROXINE SODIUM
     Indication: HYPOTHYROIDISM
     Route: 048
     Dates: end: 20180808
  3. EZETROL [Suspect]
     Active Substance: EZETIMIBE
     Route: 048
     Dates: end: 20180808
  4. PRAVASTATINE SODIQUE [Suspect]
     Active Substance: PRAVASTATIN SODIUM
     Route: 048
     Dates: end: 20180808
  5. BISOPROLOL [Suspect]
     Active Substance: BISOPROLOL
     Route: 048
     Dates: end: 20180808
  6. ZOPICLONE [Suspect]
     Active Substance: ZOPICLONE
     Route: 048
     Dates: end: 20180808
  7. BIPRETERAX [Suspect]
     Active Substance: INDAPAMIDE\PERINDOPRIL
     Route: 048
     Dates: end: 20180808
  8. OGASTORO [Suspect]
     Active Substance: LANSOPRAZOLE
     Route: 048
     Dates: end: 20180808

REACTIONS (9)
  - Fracture [Fatal]
  - Epistaxis [Fatal]
  - Brain oedema [Fatal]
  - Mydriasis [Fatal]
  - Cardio-respiratory arrest [Fatal]
  - Coma [Fatal]
  - Fall [Fatal]
  - Cerebral haemorrhage [Fatal]
  - Ear haemorrhage [Fatal]

NARRATIVE: CASE EVENT DATE: 20180807
